FAERS Safety Report 6248477-3 (Version None)
Quarter: 2009Q2

REPORT INFORMATION
  Report Type: 
  Country: None (occurrence: None)
  Receive Date: 20090629
  Receipt Date: 20090619
  Transmission Date: 20091009
  Serious: Yes (Other)
  Sender: FDA-Public Use
  Company Number: US-ROCHE-636754

PATIENT
  Sex: Female

DRUGS (9)
  1. BONIVA [Suspect]
     Indication: OSTEOPENIA
     Route: 048
     Dates: start: 20090602
  2. HORMONES [Concomitant]
     Dosage: NAME: HORMONES VAGINAL (NATURAL PRGESTERONE/ESTRIGILE)
  3. NEURONTIN [Concomitant]
     Dosage: NAME: GENERIC NEURONTIN
  4. THYROID TAB [Concomitant]
     Dosage: NAME: ARMATHYROID
  5. KLONOPIN [Concomitant]
  6. TRAMADOL HCL [Concomitant]
     Dosage: NAME RPTD AS TRAMADO
  7. CYMBALTA [Concomitant]
  8. IBUPROFEN [Concomitant]
  9. ACIPHEX [Concomitant]
     Dosage: NAME: ACIDFEX

REACTIONS (9)
  - ABDOMINAL DISTENSION [None]
  - ABDOMINAL PAIN UPPER [None]
  - ANXIETY [None]
  - FATIGUE [None]
  - MYALGIA [None]
  - NAUSEA [None]
  - PYREXIA [None]
  - RECTAL HAEMORRHAGE [None]
  - SENSATION OF FOREIGN BODY [None]
